FAERS Safety Report 5929420-0 (Version None)
Quarter: 2008Q4

REPORT INFORMATION
  Report Type: 
  Country: None (occurrence: None)
  Receive Date: 20081024
  Receipt Date: 20081014
  Transmission Date: 20090506
  Serious: Yes (Hospitalization)
  Sender: FDA-Public Use
  Company Number: FR-ROCHE-591874

PATIENT
  Sex: Male

DRUGS (4)
  1. VALIUM [Suspect]
     Indication: DRUG USE FOR UNKNOWN INDICATION
     Route: 048
     Dates: start: 20080407
  2. TERCIAN [Suspect]
     Indication: DRUG USE FOR UNKNOWN INDICATION
     Dosage: DRUG: TERCIAN 100 MG.
     Route: 048
     Dates: start: 20080407
  3. ABILIFY [Suspect]
     Indication: DRUG USE FOR UNKNOWN INDICATION
     Dosage: DRUG: ABILIFY 10 MG.
     Route: 048
     Dates: start: 20080418, end: 20080421
  4. EFFEXOR [Concomitant]

REACTIONS (2)
  - BLOOD CREATINE PHOSPHOKINASE INCREASED [None]
  - MYALGIA [None]
